FAERS Safety Report 6044860-X (Version None)
Quarter: 2009Q1

REPORT INFORMATION
  Report Type: 
  Country: None (occurrence: None)
  Receive Date: 20090116
  Receipt Date: 20090116
  Transmission Date: 20090719
  Serious: No
  Sender: FDA-Public Use
  Company Number: None

PATIENT
  Sex: Male

DRUGS (2)
  1. LAMOTRIGINE [Suspect]
     Dosage: 200 MG ONCE BID PO X 2 YRS. BRAND X 2 MO. GENERIC
     Route: 048
  2. LAMOTRIGINE [Suspect]
     Dosage: 200 MG ONCE BID PO X 2 YRS. BRAND X 2 MO. GENERIC
     Route: 048

REACTIONS (4)
  - ANXIETY [None]
  - DEPRESSION [None]
  - PRODUCT QUALITY ISSUE [None]
  - SUICIDAL BEHAVIOUR [None]
